FAERS Safety Report 6491923-0 (Version None)
Quarter: 2009Q4

REPORT INFORMATION
  Report Type: 
  Country: None (occurrence: None)
  Receive Date: 20091125
  Receipt Date: 20090828
  Transmission Date: 20100525
  Serious: Yes (Hospitalization)
  Sender: FDA-Public Use
  Company Number: 2009BH013368

PATIENT
  Sex: Female

DRUGS (9)
  1. DIANEAL [Suspect]
     Indication: PERITONEAL DIALYSIS
     Dosage: 10 L; EVERY DAY; IP
     Route: 033
     Dates: start: 20090101, end: 20090825
  2. ASPIRIN [Concomitant]
  3. EPOGEN [Concomitant]
  4. LOPRESSOR [Concomitant]
  5. PHOSLO [Concomitant]
  6. NEPHROCAPS [Concomitant]
  7. SENSIPAR [Concomitant]
  8. AMLODIPINE BESYLATE [Concomitant]
  9. ATORVASTATIN CALCIUM [Concomitant]

REACTIONS (1)
  - PERITONITIS BACTERIAL [None]
